FAERS Safety Report 15403145 (Version 1)
Quarter: 2018Q3

REPORT INFORMATION
  Report Type: Spontaneous
  Country: US (occurrence: US)
  Receive Date: 20180918
  Receipt Date: 20180918
  Transmission Date: 20181010
  Serious: No
  Sender: FDA-Public Use
  Company Number: None

PATIENT
  Age: 83 Year
  Sex: Male
  Weight: 82.44 kg

DRUGS (5)
  1. NS 10ML FLUSH [Concomitant]
  2. SOLUMEDROL 40MG [Concomitant]
  3. PRIVIGEN [Suspect]
     Active Substance: HUMAN IMMUNOGLOBULIN G
     Indication: GUILLAIN-BARRE SYNDROME
     Route: 042
  4. NS 1000 IV [Concomitant]
  5. TYLENOL 325MG CAP [Concomitant]

REACTIONS (5)
  - Burning sensation [None]
  - Rash [None]
  - Restless legs syndrome [None]
  - Pruritus [None]
  - Condition aggravated [None]

NARRATIVE: CASE EVENT DATE: 20180917
